FAERS Safety Report 10373963 (Version 2)
Quarter: 2014Q3

REPORT INFORMATION
  Report Type: Spontaneous
  Country: US (occurrence: US)
  Receive Date: 20140809
  Receipt Date: 20140809
  Transmission Date: 20150326
  Serious: Yes (Other)
  Sender: FDA-Public Use
  Company Number: PHHY2014US069613

PATIENT
  Age: 51 Year
  Sex: Male

DRUGS (3)
  1. BACLOFEN INTRATHECAL [Suspect]
     Active Substance: BACLOFEN
     Indication: MUSCLE SPASTICITY
     Dosage: 2300 UG PER DAY (4000UG/ML)
     Route: 037
  2. TIZANIDINE [Suspect]
     Active Substance: TIZANIDINE
     Dosage: UNK UKN, UNK
  3. AMANTADINE [Suspect]
     Active Substance: AMANTADINE
     Dosage: UNK UKN, UNK

REACTIONS (2)
  - Muscle spasticity [Not Recovered/Not Resolved]
  - Unevaluable event [Not Recovered/Not Resolved]

NARRATIVE: CASE EVENT DATE: 201405
